FAERS Safety Report 25473288 (Version 1)
Quarter: 2025Q2

REPORT INFORMATION
  Report Type: Spontaneous
  Country: US (occurrence: None)
  Receive Date: 20250623
  Receipt Date: 20250623
  Transmission Date: 20250717
  Serious: Yes (Other)
  Sender: FDA-CTU
  Company Number: None

PATIENT
  Age: 30 Year
  Sex: Female
  Weight: 94.5 kg

DRUGS (1)
  1. BIMZELX [Suspect]
     Active Substance: BIMEKIZUMAB-BKZX
     Route: 058
     Dates: start: 20250429

REACTIONS (4)
  - Injection site pain [None]
  - Injection site swelling [None]
  - Injection site erythema [None]
  - Crying [None]

NARRATIVE: CASE EVENT DATE: 20250623
